FAERS Safety Report 12664256 (Version 1)
Quarter: 2016Q3

REPORT INFORMATION
  Report Type: Spontaneous
  Country: CN (occurrence: CN)
  Receive Date: 20160818
  Receipt Date: 20160818
  Transmission Date: 20161109
  Serious: Yes (Hospitalization)
  Sender: FDA-Public Use
  Company Number: CN-PFIZER INC-2016390206

PATIENT
  Age: 65 Year
  Sex: Male
  Weight: 87 kg

DRUGS (1)
  1. METHYLPREDNISOLONE SODIUM SUCCINATE. [Suspect]
     Active Substance: METHYLPREDNISOLONE SODIUM SUCCINATE
     Indication: INFLAMMATION
     Dosage: 80 MG, 1X/DAY
     Route: 041
     Dates: start: 20160516, end: 20160519

REACTIONS (6)
  - Infusion related reaction [Recovering/Resolving]
  - Atrial fibrillation [Recovering/Resolving]
  - Blood pressure increased [Recovering/Resolving]
  - Cyanosis [Recovering/Resolving]
  - Chills [Recovering/Resolving]
  - Oxygen saturation decreased [Recovering/Resolving]

NARRATIVE: CASE EVENT DATE: 20160519
